FAERS Safety Report 7068559-6 (Version None)
Quarter: 2010Q4

REPORT INFORMATION
  Report Type: 
  Country: None (occurrence: None)
  Receive Date: 20101028
  Receipt Date: 20100921
  Transmission Date: 20110411
  Serious: Yes (Other)
  Sender: FDA-Public Use
  Company Number: PHHY2010BR70473

PATIENT
  Age: 61 Year
  Sex: Male

DRUGS (6)
  1. VALSARTAN, AMLODIPINE [Suspect]
     Dosage: 160/5 MG
  2. VALSARTAN, AMLODIPINE [Suspect]
     Dosage: 320/5 MG
  3. VALSARTAN, AMLODIPINE [Suspect]
     Dosage: 160/5 MG
  4. PAROXETINE HCL [Suspect]
     Dosage: 10 MG
  5. ATORVASTATIN [Concomitant]
     Dosage: 10 MG
  6. NICOTINIC ACID [Concomitant]
     Dosage: 1,000 MG (GRADUAL INCREASE)

REACTIONS (5)
  - BLOOD PRESSURE INADEQUATELY CONTROLLED [None]
  - LEFT VENTRICULAR HYPERTROPHY [None]
  - SLEEP APNOEA SYNDROME [None]
  - SNORING [None]
  - SOMNOLENCE [None]
